FAERS Safety Report 9558812 (Version 1)
Quarter: 2013Q3

REPORT INFORMATION
  Report Type: Spontaneous
  Country: BR (occurrence: BR)
  Receive Date: 20130926
  Receipt Date: 20130926
  Transmission Date: 20140515
  Serious: Yes (Other)
  Sender: FDA-Public Use
  Company Number: BR-ELI_LILLY_AND_COMPANY-BR201309005764

PATIENT
  Sex: Female

DRUGS (1)
  1. HUMULIN R [Suspect]
     Dosage: UNK, UNKNOWN
     Route: 065

REACTIONS (4)
  - Blindness [Unknown]
  - Coma [Unknown]
  - Diabetes mellitus [Unknown]
  - Blood glucose increased [Unknown]
